FAERS Safety Report 24876808 (Version 1)
Quarter: 2025Q1

REPORT INFORMATION
  Report Type: Spontaneous
  Country: ES (occurrence: ES)
  Receive Date: 20250123
  Receipt Date: 20250123
  Transmission Date: 20250408
  Serious: Yes (Death, Hospitalization, Other)
  Sender: AUROBINDO
  Company Number: ES-AEMPS-1618080

PATIENT
  Age: 63 Year
  Sex: Male

DRUGS (2)
  1. PIRFENIDONE [Interacting]
     Active Substance: PIRFENIDONE
     Indication: Acute interstitial pneumonitis
     Route: 048
     Dates: start: 20240812
  2. QUETIAPINE [Interacting]
     Active Substance: QUETIAPINE
     Indication: Agitation
     Route: 048
     Dates: start: 20240812

REACTIONS (4)
  - Pneumonia [Fatal]
  - Interstitial lung disease [Fatal]
  - Condition aggravated [Fatal]
  - Agranulocytosis [Recovered/Resolved]

NARRATIVE: CASE EVENT DATE: 20240501
